FAERS Safety Report 8905202 (Version 2)
Quarter: 2012Q4

REPORT INFORMATION
  Report Type: 
  Country: GB (occurrence: GB)
  Receive Date: 20121112
  Receipt Date: 20121207
  Transmission Date: 20130627
  Serious: Yes (Other)
  Sender: FDA-Public Use
  Company Number: PHFR2012GB004786

PATIENT
  Age: 41 Year
  Sex: Male

DRUGS (13)
  1. CLOZARIL [Suspect]
     Indication: SCHIZOPHRENIA
     Route: 048
     Dates: start: 20090120
  2. CLOZARIL [Suspect]
     Dosage: 475 mg, QD
     Dates: start: 201202
  3. CLOZARIL [Suspect]
     Dates: start: 20120828
  4. CLOZARIL [Suspect]
     Dosage: 575 mg, QD
  5. CLOZARIL [Suspect]
     Dosage: 350 mg, UNK
     Dates: start: 20120910
  6. CLOZARIL [Suspect]
     Dosage: 325 mg, UNK
     Dates: start: 20121009
  7. CLOZARIL [Suspect]
     Dosage: 300 mg, QD (100 mg mane and 200 mg nocte)
     Dates: start: 20121016
  8. CITALOPRAM [Concomitant]
     Dosage: 30 mg, at nocte
  9. PIRENZEPINE [Concomitant]
     Dosage: 100 mg, at nocte
  10. ISPAGHULA HUSK [Concomitant]
     Dosage: 1 DF, BID
  11. PIOGLITAZONE [Concomitant]
     Dosage: 1 DF, BID
  12. METFORMINE [Concomitant]
     Dosage: 1 DF, BID
  13. NOVOMIX 30 [Concomitant]
     Dosage: BID (flexpen 100 u/ml suspension 3 ml)

REACTIONS (19)
  - Hepatitis C [Not Recovered/Not Resolved]
  - Inflammation [Unknown]
  - Fibrosis [Not Recovered/Not Resolved]
  - Antipsychotic drug level increased [Recovered/Resolved]
  - Type 1 diabetes mellitus [Recovering/Resolving]
  - Glycosylated haemoglobin increased [Unknown]
  - Blood glucose increased [Unknown]
  - Hepatic function abnormal [Not Recovered/Not Resolved]
  - Schizophrenia [Recovering/Resolving]
  - Mental disorder [Recovering/Resolving]
  - Abnormal behaviour [Unknown]
  - Alanine aminotransferase increased [Unknown]
  - Blood creatinine decreased [Recovered/Resolved]
  - High density lipoprotein decreased [Unknown]
  - Low density lipoprotein increased [Unknown]
  - Antipsychotic drug level below therapeutic [Unknown]
  - Blood cholesterol increased [Unknown]
  - Blood triglycerides increased [Unknown]
  - Platelet count decreased [Unknown]
